FAERS Safety Report 6532543-9 (Version None)
Quarter: 2010Q1

REPORT INFORMATION
  Report Type: 
  Country: None (occurrence: None)
  Receive Date: 20100111
  Receipt Date: 20100105
  Transmission Date: 20100710
  Serious: Yes (Hospitalization)
  Sender: FDA-Public Use
  Company Number: US-ELI_LILLY_AND_COMPANY-US200912004017

PATIENT
  Sex: Male
  Weight: 68.49 kg

DRUGS (36)
  1. PEMETREXED [Suspect]
     Indication: NON-SMALL CELL LUNG CANCER
     Dosage: 925 MG, OTHER
     Route: 042
     Dates: start: 20090929
  2. CARBOPLATIN [Suspect]
     Indication: NON-SMALL CELL LUNG CANCER
     Dosage: 468 MG, OTHER
     Route: 042
     Dates: start: 20090929
  3. CETUXIMAB [Suspect]
     Indication: NON-SMALL CELL LUNG CANCER
     Dosage: 462 MG, OTHER
     Route: 042
     Dates: start: 20090929
  4. ASPIRIN [Concomitant]
     Indication: PROPHYLAXIS
     Dosage: 81 MG, DAILY (1/D)
     Route: 048
     Dates: start: 20060101
  5. ASPIRIN [Concomitant]
     Dosage: 81 MG, UNK
     Dates: start: 20060101
  6. TOPROL-XL [Concomitant]
     Indication: HYPERTENSION
     Dosage: 25 MG, DAILY (1/D)
     Route: 048
     Dates: start: 20060101
  7. PROSCAR [Concomitant]
     Indication: BENIGN PROSTATIC HYPERPLASIA
     Dosage: 5 MG, DAILY (1/D)
     Dates: start: 19750101
  8. ALTACE [Concomitant]
     Indication: HYPERTENSION
     Dosage: 2.5 MG, DAILY (1/D)
     Dates: start: 20060101
  9. NORVASC [Concomitant]
     Indication: HYPERTENSION
     Dosage: 10 MG, DAILY (1/D)
     Route: 048
     Dates: start: 20060101
  10. POTASSIUM [Concomitant]
     Indication: PROPHYLAXIS
     Dosage: 10 MEQ, DAILY (1/D)
     Route: 048
     Dates: start: 20040101, end: 20091229
  11. POTASSIUM [Concomitant]
     Dosage: 10 MG, 2/D
     Route: 048
     Dates: start: 20091229
  12. LASIX [Concomitant]
     Indication: HYPERTENSION
     Dosage: 20 MG, UNK
     Route: 048
     Dates: start: 20040101
  13. TRICOR [Concomitant]
     Indication: HYPERCHOLESTEROLAEMIA
     Dosage: 145 MG, DAILY (1/D)
     Dates: start: 20050101
  14. ZANTAC [Concomitant]
     Indication: PROPHYLAXIS
     Dosage: 150 MG, 2/D
     Route: 048
     Dates: start: 20020101
  15. VALIUM [Concomitant]
     Indication: DEPRESSION
     Dosage: 5 MG, 2/D
     Route: 048
     Dates: start: 19580101
  16. LORTAB [Concomitant]
     Indication: BACK PAIN
     Dosage: UNK, AS NEEDED
     Route: 048
     Dates: start: 20060101
  17. CENTRUM SILVER [Concomitant]
     Indication: SUPPLEMENTATION THERAPY
     Dosage: UNK, DAILY (1/D)
     Route: 048
     Dates: start: 20040101
  18. HALDOL [Concomitant]
     Indication: TOURETTE'S DISORDER
     Dosage: 1 MG, DAILY (1/D)
     Route: 048
     Dates: start: 20040101
  19. DECADRON /NET/ [Concomitant]
     Indication: PREMEDICATION
     Dosage: 4 MG, UNK
     Route: 048
     Dates: start: 20090922
  20. FOLIC ACID [Concomitant]
     Indication: SUPPLEMENTATION THERAPY
     Dosage: 1 MG, DAILY (1/D)
     Route: 048
     Dates: start: 20090918, end: 20091129
  21. FOLIC ACID [Concomitant]
     Dosage: 1 MG, DAILY (1/D)
     Route: 048
     Dates: start: 20091209
  22. ZOFRAN [Concomitant]
     Indication: PAIN
     Dosage: 8 MG, 3/D
     Route: 048
     Dates: start: 20090922
  23. LEXAPRO [Concomitant]
     Indication: DEPRESSION
     Dosage: 10 MG, DAILY (1/D)
     Route: 048
     Dates: start: 20090101
  24. MEDROL [Concomitant]
     Indication: MUCOSAL INFLAMMATION
     Dosage: 4 MG, DAILY (1/D)
     Route: 048
     Dates: start: 20091028, end: 20091103
  25. VIBRAMYCIN                              /NET/ [Concomitant]
     Indication: RASH
     Dosage: 100 MG, DAILY (1/D)
     Route: 048
     Dates: start: 20091009
  26. CLOTRIMAZOLE [Concomitant]
     Dosage: UNK, AS NEEDED
     Route: 061
  27. NEXIUM [Concomitant]
     Dosage: 40 MG, DAILY (1/D)
  28. FLUCONAZOLE [Concomitant]
     Dosage: 150 MG, DAILY (1/D)
  29. MEGACE [Concomitant]
     Indication: INCREASED APPETITE
     Dosage: 625 MG, DAILY (1/D)
     Route: 048
     Dates: start: 20091215
  30. DIFLUCAN [Concomitant]
     Indication: RASH
     Dosage: 150 MG, DAILY (1/D)
     Route: 048
     Dates: start: 20091117, end: 20091120
  31. LOTRISONE [Concomitant]
     Indication: RASH
     Dosage: UNK, AS NEEDED
     Route: 061
     Dates: start: 20091009
  32. MORPHINE [Concomitant]
     Indication: PAIN
     Dosage: 30 MG, AS NEEDED
     Route: 048
     Dates: start: 20091201
  33. KETOCONAZOLE [Concomitant]
     Indication: RASH
     Dosage: UNK, DAILY (1/D)
     Route: 061
     Dates: start: 20091201
  34. NEUPOGEN [Concomitant]
     Indication: WHITE BLOOD CELL COUNT DECREASED
     Dosage: 480 MG, DAILY (1/D)
     Route: 058
     Dates: start: 20091216, end: 20091218
  35. NEUPOGEN [Concomitant]
     Dosage: 480 MG, UNK
     Route: 058
     Dates: start: 20091221, end: 20091221
  36. ARANESP [Concomitant]
     Indication: ANAEMIA
     Dosage: 500 MG, UNK
     Route: 058
     Dates: start: 20091208, end: 20091208

REACTIONS (1)
  - OESOPHAGITIS [None]
